FAERS Safety Report 12982308 (Version 1)
Quarter: 2016Q4

REPORT INFORMATION
  Report Type: Spontaneous
  Country: ZA (occurrence: ZA)
  Receive Date: 20161129
  Receipt Date: 20161129
  Transmission Date: 20170207
  Serious: Yes (Hospitalization, Other)
  Sender: FDA-Public Use
  Company Number: PHHY2016ZA142595

PATIENT
  Age: 73 Year
  Sex: Male
  Weight: 82 kg

DRUGS (2)
  1. HYCAMTIN [Suspect]
     Active Substance: TOPOTECAN HYDROCHLORIDE
     Indication: NEUROENDOCRINE CARCINOMA OF THE SKIN
     Dosage: 3 MG, UNK (1 TO 5 DAYS)
     Route: 042
     Dates: start: 20160817, end: 20160821
  2. HYCAMTIN [Suspect]
     Active Substance: TOPOTECAN HYDROCHLORIDE
     Indication: SKIN CANCER
     Dosage: 1.5 MG/M2, UNK
     Route: 065
     Dates: start: 201508

REACTIONS (12)
  - Haemoglobin decreased [Unknown]
  - Skin necrosis [Unknown]
  - Blister [Unknown]
  - Dermatitis bullous [Recovered/Resolved]
  - Pancytopenia [Unknown]
  - Skin ulcer [Unknown]
  - Purpura [Unknown]
  - Neutrophil count decreased [Unknown]
  - White blood cell count decreased [Unknown]
  - Platelet count decreased [Unknown]
  - Skin reaction [Unknown]
  - Product use issue [Unknown]

NARRATIVE: CASE EVENT DATE: 20150828
